FAERS Safety Report 20727035 (Version 2)
Quarter: 2023Q4

REPORT INFORMATION
  Report Type: Spontaneous
  Country: US (occurrence: US)
  Receive Date: 20220419
  Receipt Date: 20231009
  Transmission Date: 20240110
  Serious: No
  Sender: FDA-Public Use
  Company Number: US-VERTEX PHARMACEUTICALS-2022-005919

PATIENT
  Sex: Female

DRUGS (1)
  1. TRIKAFTA [Suspect]
     Active Substance: ELEXACAFTOR\IVACAFTOR\TEZACAFTOR
     Indication: Cystic fibrosis
     Dosage: FREQUENCY UNKNOWN
     Route: 048
     Dates: start: 20220914

REACTIONS (3)
  - Alopecia [Not Recovered/Not Resolved]
  - Acne [Recovered/Resolved]
  - Intermenstrual bleeding [Recovered/Resolved]
